FAERS Safety Report 23035704 (Version 1)
Quarter: 2023Q4

REPORT INFORMATION
  Report Type: Spontaneous
  Country: US (occurrence: US)
  Receive Date: 20231006
  Receipt Date: 20231006
  Transmission Date: 20240110
  Serious: No
  Sender: FDA-Public Use
  Company Number: US-ELI_LILLY_AND_COMPANY-US202310002029

PATIENT
  Age: 71 Year
  Sex: Female

DRUGS (3)
  1. TRULICITY [Suspect]
     Active Substance: DULAGLUTIDE
     Indication: Diabetes mellitus
     Dosage: 0.75 MG, WEEKLY (1/W)
     Route: 058
     Dates: start: 202309
  2. ASPIRIN [Suspect]
     Active Substance: ASPIRIN
     Indication: Product used for unknown indication
     Dosage: 81 MG, UNKNOWN
     Route: 065
  3. LANTUS [Concomitant]
     Active Substance: INSULIN GLARGINE
     Indication: Product used for unknown indication

REACTIONS (6)
  - Epistaxis [Unknown]
  - Haemorrhage [Unknown]
  - Neck mass [Unknown]
  - Odynophagia [Unknown]
  - Headache [Unknown]
  - Acne [Unknown]

NARRATIVE: CASE EVENT DATE: 20230901
